FAERS Safety Report 24251514 (Version 1)
Quarter: 2024Q3

REPORT INFORMATION
  Report Type: Spontaneous
  Country: US (occurrence: US)
  Receive Date: 20240826
  Receipt Date: 20240826
  Transmission Date: 20241016
  Serious: No
  Sender: SANOFI AVENTIS
  Company Number: US-SA-SAC20240819001043

PATIENT
  Age: 19 Year
  Sex: Female

DRUGS (9)
  1. DUPIXENT [Suspect]
     Active Substance: DUPILUMAB
     Indication: Dermatitis atopic
     Dosage: 300 MG, QOW
     Route: 058
     Dates: start: 20240528
  2. CITALOPRAM HYDROBROMIDE [Concomitant]
     Active Substance: CITALOPRAM HYDROBROMIDE
     Dosage: UNK
     Route: 048
  3. RISPERDAL [Concomitant]
     Active Substance: RISPERIDONE
     Dosage: UNK
     Route: 048
  4. LITHIUM CARBONATE [Concomitant]
     Active Substance: LITHIUM CARBONATE
     Dosage: UNK
     Route: 048
  5. METFORMIN HYDROCHLORIDE [Concomitant]
     Active Substance: METFORMIN HYDROCHLORIDE
     Dosage: UNK
     Route: 048
  6. MELATONIN [Concomitant]
     Active Substance: MELATONIN
     Dosage: UNK
     Route: 048
  7. FISH OIL [Concomitant]
     Active Substance: FISH OIL
     Dosage: UNK
     Route: 048
  8. STRATTERA [Concomitant]
     Active Substance: ATOMOXETINE HYDROCHLORIDE
     Dosage: UNK
     Route: 048
  9. VITAMIN D NOS [Concomitant]
     Active Substance: CHOLECALCIFEROL\ERGOCALCIFEROL
     Dosage: UNK
     Route: 048

REACTIONS (1)
  - Dermatitis atopic [Unknown]

NARRATIVE: CASE EVENT DATE: 20240815
